FAERS Safety Report 15668343 (Version 3)
Quarter: 2019Q1

REPORT INFORMATION
  Report Type: Spontaneous
  Country: DE (occurrence: DE)
  Receive Date: 20181129
  Receipt Date: 20190326
  Transmission Date: 20190417
  Serious: Yes (Hospitalization, Other)
  Sender: FDA-Public Use
  Company Number: DE-AUROBINDO-AUR-APL-2018-057267

PATIENT

DRUGS (14)
  1. MADOPAR LT [Suspect]
     Active Substance: BENSERAZIDE HYDROCHLORIDE\LEVODOPA
     Indication: PARKINSON^S DISEASE
     Dosage: 1.1/2 TBL MORNING AT 06.00 HR AND 1 TBL AS NEEDED (INITIAL) ()
     Route: 048
     Dates: start: 2010, end: 20170315
  2. MULTAQ [Suspect]
     Active Substance: DRONEDARONE
     Indication: PRODUCT USED FOR UNKNOWN INDICATION
     Dosage: 800 MILLIGRAM, DAILY, (1 TBL AT 07.00HRS AND 1 TBL AT 19.00HRS (INITIAL))
     Route: 065
     Dates: start: 20170122, end: 20170126
  3. LEVOCOMP [Suspect]
     Active Substance: CARBIDOPA\LEVODOPA
     Dosage: 200 MILLIGRAM, DAILY, (1 TBL IN THE NIGHT AT 23.00 HRS(INITIAL))
     Route: 048
     Dates: start: 20170330
  4. ONGENTYS [Concomitant]
     Active Substance: OPICAPONE
     Indication: PRODUCT USED FOR UNKNOWN INDICATION
     Dosage: 50 MILLIGRAM, DAILY
     Route: 065
  5. APO-GO [Suspect]
     Active Substance: APOMORPHINE
     Indication: PARKINSON^S DISEASE
     Dosage: 5 MILLIGRAM, DAILY, 5 MG MORNING (INITIAL)
     Route: 058
     Dates: start: 2013, end: 20170315
  6. PANTOPRAZOLE [Suspect]
     Active Substance: PANTOPRAZOLE
     Indication: PRODUCT USED FOR UNKNOWN INDICATION
     Dosage: 80 MILLIGRAM, DAILY, (1 TBL MORNING, 1 TBL EVENING (INITIAL))
     Route: 048
     Dates: start: 2013, end: 20170213
  7. CARDIODORON [Suspect]
     Active Substance: HERBALS
     Indication: PRODUCT USED FOR UNKNOWN INDICATION
     Dosage: 1 TBL AT 07.00 HRS  (INITIAL)
     Route: 048
     Dates: start: 2010, end: 20170131
  8. DACEPTON [Suspect]
     Active Substance: APOMORPHINE HYDROCHLORIDE
     Indication: PARKINSON^S DISEASE
     Dosage: 84.5 MG DAILY FROM 07.00 TO 22.00 HRS--} 124,0 MG/D 00:00 -23:59 ()
     Route: 058
     Dates: start: 20160721
  9. MADOPAR [Suspect]
     Active Substance: BENSERAZIDE HYDROCHLORIDE\LEVODOPA
     Indication: PARKINSON^S DISEASE
     Dosage: 4X1TBL PER DAY } 5 X 1.75
     Route: 048
     Dates: start: 2013
  10. BISOPROLOL FILM-COATED TABLETS [Suspect]
     Active Substance: BISOPROLOL
     Indication: HYPERTENSION
     Dosage: 10 MILLIGRAM, DAILY, (1 TBL AT 07.00 HRS AND 1 TBL AT 19.00HRS (INITIAL))
     Route: 048
     Dates: start: 2012
  11. RIVOTRIL [Suspect]
     Active Substance: CLONAZEPAM
     Indication: PRODUCT USED FOR UNKNOWN INDICATION
     Dosage: 0.5 MILLIGRAM, DAILY, 1 TBL AT 23.00HRS (INITIAL)
     Route: 048
     Dates: start: 2010
  12. SEROQUEL [Concomitant]
     Active Substance: QUETIAPINE FUMARATE
     Indication: PRODUCT USED FOR UNKNOWN INDICATION
     Dosage: 25 DOSAGE FORM, ONCE A DAY
     Route: 065
  13. LEVOCOMP [Suspect]
     Active Substance: CARBIDOPA\LEVODOPA
     Indication: PARKINSON^S DISEASE
     Dosage: 1 TBL IN THE NIGHT AT 23.00 HRS(INITIAL)
     Route: 048
     Dates: start: 20170330
  14. XYLOMETAZOLINE [Suspect]
     Active Substance: XYLOMETAZOLINE
     Indication: PRODUCT USED FOR UNKNOWN INDICATION
     Dosage: AS NEEDED (INITIAL)
     Route: 045

REACTIONS (6)
  - Arrhythmia [Unknown]
  - Dyspnoea [Unknown]
  - Tooth loss [Unknown]
  - Hallucination [Not Recovered/Not Resolved]
  - Nodule [Unknown]
  - Oral discomfort [Unknown]

NARRATIVE: CASE EVENT DATE: 20170125
